FAERS Safety Report 11358586 (Version 1)
Quarter: 2015Q3

REPORT INFORMATION
  Report Type: Spontaneous
  Country: US (occurrence: US)
  Receive Date: 20150803
  Receipt Date: 20150803
  Transmission Date: 20151125
  Serious: No
  Sender: FDA-Public Use
  Company Number: US-ELI_LILLY_AND_COMPANY-US200907005736

PATIENT
  Age: 50 Year
  Sex: Male

DRUGS (6)
  1. TRILEPTAL [Concomitant]
     Active Substance: OXCARBAZEPINE
     Dosage: 20 MG, UNK
  2. KLONOPIN [Concomitant]
     Active Substance: CLONAZEPAM
     Dosage: 1 MG, 2/D
  3. COGENTIN [Concomitant]
     Active Substance: BENZTROPINE MESYLATE
     Dosage: 1 MG, 2/D
  4. ZYPREXA [Suspect]
     Active Substance: OLANZAPINE
     Dosage: 20 MG, 2/D
  5. ZYPREXA [Suspect]
     Active Substance: OLANZAPINE
     Dosage: 60 MG, UNK
  6. COGENTIN [Concomitant]
     Active Substance: BENZTROPINE MESYLATE
     Dosage: 1 D/F, UNK

REACTIONS (4)
  - Dysphagia [Recovering/Resolving]
  - Prescribed overdose [Not Recovered/Not Resolved]
  - Extrapyramidal disorder [Recovering/Resolving]
  - Drooling [Recovering/Resolving]
